FAERS Safety Report 17249752 (Version 1)
Quarter: 2020Q1

REPORT INFORMATION
  Report Type: Spontaneous
  Country: FR (occurrence: FR)
  Receive Date: 20200109
  Receipt Date: 20200109
  Transmission Date: 20200409
  Serious: Yes (Other)
  Sender: FDA-Public Use
  Company Number: FR-ABBVIE-20K-056-3224553-00

PATIENT
  Age: 41 Year
  Sex: Female

DRUGS (4)
  1. NORVIR [Suspect]
     Active Substance: RITONAVIR
     Indication: HIV INFECTION
     Route: 048
     Dates: start: 20181128
  2. PREZISTA [Interacting]
     Active Substance: DARUNAVIR ETHANOLATE
     Indication: HIV INFECTION
     Dosage: 600+100 X2/J
     Route: 048
     Dates: start: 20181128
  3. KENACORT [Interacting]
     Active Substance: TRIAMCINOLONE
     Indication: TENDON DISORDER
     Route: 052
     Dates: start: 20191010, end: 20191010
  4. TRUVADA [Concomitant]
     Active Substance: EMTRICITABINE\TENOFOVIR DISOPROXIL FUMARATE
     Indication: HIV INFECTION
     Route: 048
     Dates: start: 20181128

REACTIONS (2)
  - Deep vein thrombosis [Recovering/Resolving]
  - Cushingoid [Recovering/Resolving]

NARRATIVE: CASE EVENT DATE: 201910
